FAERS Safety Report 7704751-2 (Version None)
Quarter: 2011Q3

REPORT INFORMATION
  Report Type: 
  Country: None (occurrence: None)
  Receive Date: 20110823
  Receipt Date: 20110815
  Transmission Date: 20111222
  Serious: Yes (Hospitalization)
  Sender: FDA-Public Use
  Company Number: CA-JNJFOC-20110809497

PATIENT
  Sex: Male

DRUGS (5)
  1. REMICADE [Suspect]
     Indication: CROHN'S DISEASE
     Route: 042
     Dates: start: 20110420, end: 20110610
  2. PURINETHOL [Concomitant]
     Dosage: 1 1/2 TAB QD
  3. ENALAPRIL MALEATE [Concomitant]
  4. MORPHINE [Concomitant]
     Route: 048
  5. HYDROCHLOROTHIAZIDE [Concomitant]

REACTIONS (5)
  - FISTULA REPAIR [None]
  - BODY TEMPERATURE INCREASED [None]
  - BLOOD PRESSURE DECREASED [None]
  - LOSS OF CONSCIOUSNESS [None]
  - PALLOR [None]
